FAERS Safety Report 7143217 (Version 4)
Quarter: 2016Q4

REPORT INFORMATION
  Report Type: Spontaneous
  Country: NO (occurrence: NO)
  Receive Date: 20091008
  Receipt Date: 20161027
  Transmission Date: 20170207
  Serious: Yes (Other)
  Sender: FDA-Public Use
  Company Number: NO-RANBAXY-2009RR-28308

PATIENT
  Age: 40 Day
  Sex: Female
  Weight: 4.74 kg

DRUGS (2)
  1. TOPAMAX [Suspect]
     Active Substance: TOPIRAMATE
     Indication: EPILEPSY
     Dosage: MOTHER HAD BEEN TAKING 100 MG/DAY FOR SEVERAL YEARS
     Route: 064
  2. TOPAMAX [Suspect]
     Active Substance: TOPIRAMATE
     Dosage: 0.5MG/KG DAILY
     Route: 063

REACTIONS (4)
  - Weight decreased [Recovering/Resolving]
  - Diarrhoea [Recovering/Resolving]
  - Foetal exposure during pregnancy [Unknown]
  - Exposure during breast feeding [Unknown]
